FAERS Safety Report 22596592 (Version 1)
Quarter: 2023Q2

REPORT INFORMATION
  Report Type: Spontaneous
  Country: US (occurrence: None)
  Receive Date: 20230613
  Receipt Date: 20230613
  Transmission Date: 20230722
  Serious: Yes (Hospitalization)
  Sender: FDA-Public Use
  Company Number: None

PATIENT
  Sex: Male

DRUGS (15)
  1. ENVARSUS XR [Suspect]
     Active Substance: TACROLIMUS
     Indication: Renal transplant
     Route: 048
     Dates: start: 20200606
  2. ENVARSUS XR [Suspect]
     Active Substance: TACROLIMUS
     Indication: Renal transplant
     Dosage: FREQUENCY : DAILY;?
     Route: 048
     Dates: start: 20200606
  3. B12 TAB [Concomitant]
  4. CRANBERRY CAP [Concomitant]
  5. D3 CAP [Concomitant]
  6. FAMOTIDINE TAB [Concomitant]
  7. CINACALET TAB [Concomitant]
  8. MYCOPHENOLIC ACID [Concomitant]
     Active Substance: MYCOPHENOLIC ACID
  9. SODIUM BICARBONATE TAB [Concomitant]
  10. CALCITRIOL CAP [Concomitant]
  11. TEMAZEPAM [Concomitant]
     Active Substance: TEMAZEPAM
  12. MYCOHENOLATE CAP [Concomitant]
  13. FUROSEMIDE TAB [Concomitant]
  14. METOPROLOL TARTRATE [Concomitant]
     Active Substance: METOPROLOL TARTRATE
  15. AMLODIPINE TAB [Concomitant]

REACTIONS (2)
  - COVID-19 [None]
  - Pneumonia [None]
